FAERS Safety Report 11746638 (Version 1)
Quarter: 2015Q4

REPORT INFORMATION
  Report Type: Spontaneous
  Country: US (occurrence: US)
  Receive Date: 20151117
  Receipt Date: 20151117
  Transmission Date: 20160304
  Serious: Yes (Other)
  Sender: FDA-Public Use
  Company Number: US-CELGENE-USA-2015111694

PATIENT
  Age: 45 Year
  Sex: Female

DRUGS (1)
  1. OTEZLA [Suspect]
     Active Substance: APREMILAST
     Indication: PSORIASIS
     Dosage: 60 MILLIGRAM
     Route: 048

REACTIONS (9)
  - Inflammation [Unknown]
  - Abdominal pain [Unknown]
  - Gait disturbance [Unknown]
  - Vomiting [Unknown]
  - Tooth infection [Unknown]
  - Pain [Unknown]
  - Nausea [Unknown]
  - Diarrhoea [Unknown]
  - Depression [Unknown]
